FAERS Safety Report 13781222 (Version 1)
Quarter: 2017Q3

REPORT INFORMATION
  Report Type: Spontaneous
  Country: US (occurrence: US)
  Receive Date: 20170722
  Receipt Date: 20170722
  Transmission Date: 20171127
  Serious: Yes (Other)
  Sender: FDA-Public Use
  Company Number: None

PATIENT
  Age: 56 Year
  Sex: Female
  Weight: 98.43 kg

DRUGS (2)
  1. SORIATANE [Concomitant]
     Active Substance: ACITRETIN
  2. OTEZLA [Suspect]
     Active Substance: APREMILAST
     Indication: DRUG THERAPY
     Route: 048

REACTIONS (2)
  - Drug ineffective [None]
  - Cerebrovascular accident [None]

NARRATIVE: CASE EVENT DATE: 20150101
